FAERS Safety Report 9372872 (Version 2)
Quarter: 2013Q3

REPORT INFORMATION
  Report Type: Spontaneous
  Country: US (occurrence: US)
  Receive Date: 20130627
  Receipt Date: 20130703
  Transmission Date: 20140515
  Serious: Yes (Other)
  Sender: FDA-Public Use
  Company Number: US-PFIZER INC-2013189268

PATIENT
  Sex: 0

DRUGS (1)
  1. PROTONIX [Suspect]
     Dosage: 20 MG, UNK

REACTIONS (1)
  - Coeliac disease [Unknown]
